FAERS Safety Report 25707259 (Version 1)
Quarter: 2025Q3

REPORT INFORMATION
  Report Type: Report from Study
  Country: PH (occurrence: PH)
  Receive Date: 20250820
  Receipt Date: 20250820
  Transmission Date: 20251020
  Serious: Yes (Death)
  Sender: OTSUKA
  Company Number: PH-MMM-Otsuka-CGXW63PN

PATIENT

DRUGS (1)
  1. TOLVAPTAN [Suspect]
     Active Substance: TOLVAPTAN
     Indication: Hypertension
     Dosage: 0.5 DF, QD (15 MG HALF TABLET ONCE A DAY 7AM)
     Route: 048
     Dates: start: 202504, end: 20250507

REACTIONS (4)
  - Cardiac disorder [Fatal]
  - Disease complication [Fatal]
  - Wrong technique in product usage process [Unknown]
  - Underdose [Unknown]
